FAERS Safety Report 21148502 (Version 3)
Quarter: 2022Q3

REPORT INFORMATION
  Report Type: Spontaneous
  Country: US (occurrence: US)
  Receive Date: 20220729
  Receipt Date: 20220919
  Transmission Date: 20221026
  Serious: No
  Sender: FDA-Public Use
  Company Number: US-PFIZER INC-202200965441

PATIENT
  Age: 60 Year
  Sex: Male
  Weight: 136.08 kg

DRUGS (1)
  1. GENOTROPIN [Suspect]
     Active Substance: SOMATROPIN
     Indication: Pituitary tumour
     Dosage: 0.6 MG, DAILY

REACTIONS (3)
  - Off label use [Unknown]
  - Device information output issue [Unknown]
  - Drug dose omission by device [Unknown]
